FAERS Safety Report 6530478-9 (Version None)
Quarter: 2010Q1

REPORT INFORMATION
  Report Type: 
  Country: None (occurrence: None)
  Receive Date: 20100106
  Receipt Date: 20100106
  Transmission Date: 20100710
  Serious: Yes (Disabling)
  Sender: FDA-Public Use
  Company Number: None

PATIENT
  Age: 68 Year
  Sex: Female
  Weight: 65.7716 kg

DRUGS (1)
  1. ZETIA [Suspect]
     Indication: BLOOD CHOLESTEROL
     Dosage: 10MG ONCE A DAY
     Dates: start: 20091016, end: 20091101

REACTIONS (3)
  - ARTHRALGIA [None]
  - CARDIAC FLUTTER [None]
  - MUSCULAR WEAKNESS [None]
